FAERS Safety Report 12818719 (Version 1)
Quarter: 2016Q4

REPORT INFORMATION
  Report Type: Spontaneous
  Country: US (occurrence: US)
  Receive Date: 20161005
  Receipt Date: 20161005
  Transmission Date: 20170207
  Serious: No
  Sender: FDA-Public Use
  Company Number: None

PATIENT
  Age: 19 Year
  Sex: Male
  Weight: 94.5 kg

DRUGS (3)
  1. TINIDAZOLE. [Suspect]
     Active Substance: TINIDAZOLE
     Indication: GIARDIASIS
     Dosage: OTHER ORAL
     Route: 048
     Dates: start: 20161002, end: 20161002
  2. C [Concomitant]
  3. VITAMIN D3 [Concomitant]
     Active Substance: CHOLECALCIFEROL

REACTIONS (2)
  - Feeling abnormal [None]
  - Condition aggravated [None]

NARRATIVE: CASE EVENT DATE: 20161005
